FAERS Safety Report 8889147 (Version 2)
Quarter: 2013Q1

REPORT INFORMATION
  Report Type: Spontaneous
  Country: JP (occurrence: JP)
  Receive Date: 20121106
  Receipt Date: 20130328
  Transmission Date: 20140127
  Serious: Yes (Death, Life-Threatening, Hospitalization)
  Sender: FDA-Public Use
  Company Number: JP-EISAI INC-E7389-03184-SPO-JP

PATIENT
  Age: 54 Year
  Sex: Female
  Weight: 53 kg

DRUGS (5)
  1. HALAVEN [Suspect]
     Indication: BREAST CANCER RECURRENT
     Route: 041
     Dates: start: 20111210, end: 20111210
  2. HALAVEN [Suspect]
     Indication: METASTASES TO BONE
     Route: 041
     Dates: start: 20120123
  3. HALAVEN [Suspect]
     Indication: METASTASES TO ADRENALS
  4. HALAVEN [Suspect]
     Indication: METASTASES TO LYMPH NODES
  5. ALOXI [Concomitant]
     Indication: PROPHYLAXIS
     Route: 041

REACTIONS (5)
  - Respiratory failure [Fatal]
  - Altered state of consciousness [Recovered/Resolved]
  - Blood pressure decreased [Recovered/Resolved]
  - Neutropenia [Recovering/Resolving]
  - Respiratory failure [Unknown]
